FAERS Safety Report 12338223 (Version 1)
Quarter: 2016Q2

REPORT INFORMATION
  Report Type: Spontaneous
  Country: DE (occurrence: DE)
  Receive Date: 20160505
  Receipt Date: 20160505
  Transmission Date: 20160815
  Serious: Yes (Other)
  Sender: FDA-Public Use
  Company Number: PHHY2016DE060772

PATIENT
  Sex: Female

DRUGS (1)
  1. DEFERASIROX [Suspect]
     Active Substance: DEFERASIROX
     Indication: THALASSAEMIA BETA
     Route: 065

REACTIONS (5)
  - Trendelenburg^s symptom [Recovering/Resolving]
  - Hypophosphataemia [Unknown]
  - Muscular weakness [Recovering/Resolving]
  - Fanconi syndrome acquired [Unknown]
  - Atrophy [Unknown]
